FAERS Safety Report 6791818-9 (Version None)
Quarter: 2010Q2

REPORT INFORMATION
  Report Type: 
  Country: None (occurrence: None)
  Receive Date: 20100624
  Receipt Date: 20090528
  Transmission Date: 20101027
  Serious: Yes (Other)
  Sender: FDA-Public Use
  Company Number: US-PFIZER INC-2008058798

PATIENT
  Sex: Female
  Weight: 45 kg

DRUGS (5)
  1. PROVERA [Suspect]
     Indication: HORMONE REPLACEMENT THERAPY
     Dosage: 10 MG, UNK
     Route: 048
     Dates: start: 19910101, end: 19960101
  2. PREMARIN [Suspect]
     Indication: HORMONE REPLACEMENT THERAPY
     Dosage: 0.625 MG, UNK
     Dates: start: 19910101, end: 19960101
  3. PREMPRO [Suspect]
     Indication: HORMONE REPLACEMENT THERAPY
     Dosage: UNK
     Dates: start: 19960101, end: 20030101
  4. TRANXENE [Concomitant]
     Indication: ANXIETY
     Dosage: UNK
     Dates: start: 19850101, end: 20040101
  5. ELAVIL [Concomitant]
     Indication: FIBROMYALGIA
     Dosage: 25 MG, UNK
     Dates: start: 19890101

REACTIONS (1)
  - BREAST CANCER [None]
